FAERS Safety Report 12517793 (Version 1)
Quarter: 2016Q2

REPORT INFORMATION
  Report Type: Spontaneous
  Country: US (occurrence: US)
  Receive Date: 20160630
  Receipt Date: 20160630
  Transmission Date: 20160815
  Serious: Yes (Other)
  Sender: FDA-Public Use
  Company Number: US-009507513-1606USA010541

PATIENT
  Sex: Female

DRUGS (2)
  1. NEXPLANON [Suspect]
     Active Substance: ETONOGESTREL
     Indication: CONTRACEPTION
     Dosage: 1 ROD/EVERY 3 YEARS
     Route: 058
     Dates: start: 201410, end: 20160621
  2. TOPAMAX [Interacting]
     Active Substance: TOPIRAMATE
     Indication: MIGRAINE

REACTIONS (4)
  - Migraine [Unknown]
  - Pregnancy with implant contraceptive [Unknown]
  - Unintended pregnancy [Unknown]
  - Labelled drug-drug interaction medication error [Unknown]
